FAERS Safety Report 17246607 (Version 1)
Quarter: 2020Q1

REPORT INFORMATION
  Report Type: Report from Study
  Country: US (occurrence: US)
  Receive Date: 20200108
  Receipt Date: 20200108
  Transmission Date: 20200409
  Serious: No
  Sender: FDA-Public Use
  Company Number: NVSC2020US002387

PATIENT
  Age: 94 Year
  Sex: Female

DRUGS (1)
  1. PROMACTA [Suspect]
     Active Substance: ELTROMBOPAG OLAMINE
     Indication: PANCYTOPENIA
     Dosage: 50 MG, QD
     Route: 048
     Dates: start: 201912

REACTIONS (2)
  - Product use in unapproved indication [Unknown]
  - Urinary tract infection [Recovering/Resolving]
